FAERS Safety Report 9171185 (Version 1)
Quarter: 2013Q1

REPORT INFORMATION
  Report Type: Spontaneous
  Country: CH (occurrence: CH)
  Receive Date: 20130319
  Receipt Date: 20130319
  Transmission Date: 20140127
  Serious: Yes (Other)
  Sender: FDA-Public Use
  Company Number: CH-BRISTOL-MYERS SQUIBB COMPANY-17466863

PATIENT
  Age: 53 Year
  Sex: Female

DRUGS (2)
  1. ABILIFY DISCMELT TABS [Suspect]
     Indication: PSYCHOTIC DISORDER
     Dosage: INITIALLY GIVEN 15MG
     Dates: start: 201301
  2. SEROQUEL [Concomitant]
     Dosage: 1DF:900 UNIT NOS

REACTIONS (1)
  - Psychotic disorder [Not Recovered/Not Resolved]
